FAERS Safety Report 6626163-5 (Version None)
Quarter: 2010Q1

REPORT INFORMATION
  Report Type: 
  Country: None (occurrence: None)
  Receive Date: 20100310
  Receipt Date: 20100228
  Transmission Date: 20100710
  Serious: Yes (Other)
  Sender: FDA-Public Use
  Company Number: PHHY2010MX11911

PATIENT
  Age: 78 Year
  Sex: Female

DRUGS (2)
  1. DIOVAN [Suspect]
     Indication: HYPERTENSION
     Dosage: 160 MG DAILY
     Route: 048
     Dates: start: 20091001, end: 20100201
  2. LOSARTAN POTASSIUM [Concomitant]

REACTIONS (2)
  - HIP FRACTURE [None]
  - IMMOBILE [None]
